FAERS Safety Report 24279115 (Version 3)
Quarter: 2025Q1

REPORT INFORMATION
  Report Type: Spontaneous
  Country: US (occurrence: US)
  Receive Date: 20240903
  Receipt Date: 20250131
  Transmission Date: 20250408
  Serious: Yes (Death, Other)
  Sender: INCYTE
  Company Number: US-INCYTE CORPORATION-2024IN008356

PATIENT

DRUGS (2)
  1. MONJUVI [Suspect]
     Active Substance: TAFASITAMAB-CXIX
     Indication: Diffuse large B-cell lymphoma
     Route: 065
     Dates: start: 20240621
  2. MONJUVI [Suspect]
     Active Substance: TAFASITAMAB-CXIX
     Route: 065

REACTIONS (3)
  - Death [Fatal]
  - Product availability issue [Unknown]
  - Product dose omission issue [Unknown]
